FAERS Safety Report 13029717 (Version 2)
Quarter: 2017Q1

REPORT INFORMATION
  Report Type: Spontaneous
  Country: GB (occurrence: GB)
  Receive Date: 20161215
  Receipt Date: 20170110
  Transmission Date: 20170428
  Serious: Yes (Other)
  Sender: FDA-Public Use
  Company Number: GB-ASTELLAS-2016US048617

PATIENT
  Age: 47 Year
  Sex: Male

DRUGS (28)
  1. EMTRICITABINE W/TENOFOVIR [Concomitant]
     Active Substance: EMTRICITABINE\TENOFOVIR DISOPROXIL
     Dosage: UNK UNK, UNKNOWN FREQ. (DAY 23)
     Route: 065
     Dates: start: 20110808
  2. EMTRICITABINE W/TENOFOVIR [Concomitant]
     Active Substance: EMTRICITABINE\TENOFOVIR DISOPROXIL
     Dosage: UNK UNK, UNKNOWN FREQ. (DAY 81)
     Route: 065
     Dates: start: 20111005
  3. EFAVIRENZ [Concomitant]
     Active Substance: EFAVIRENZ
     Dosage: UNK UNK, UNKNOWN FREQ. (DAY 23)
     Route: 065
     Dates: start: 20110808
  4. EMTRICITABINE W/TENOFOVIR [Concomitant]
     Active Substance: EMTRICITABINE\TENOFOVIR DISOPROXIL
     Route: 065
     Dates: start: 20110324
  5. EFAVIRENZ [Concomitant]
     Active Substance: EFAVIRENZ
     Dosage: UNK UNK, UNKNOWN FREQ. (DAY 16)
     Route: 065
     Dates: start: 20110801
  6. EMTRICITABINE W/TENOFOVIR [Concomitant]
     Active Substance: EMTRICITABINE\TENOFOVIR DISOPROXIL
     Dosage: UNK UNK, UNKNOWN FREQ. (DAY 1537)
     Route: 065
     Dates: start: 20150930
  7. EFAVIRENZ [Concomitant]
     Active Substance: EFAVIRENZ
     Indication: FACTOR VIII DEFICIENCY
     Dosage: UNK UNK, UNKNOWN FREQ.
     Route: 065
     Dates: start: 2004
  8. EFAVIRENZ [Concomitant]
     Active Substance: EFAVIRENZ
     Indication: HIV INFECTION
     Dosage: UNK UNK, UNKNOWN FREQ.
     Route: 065
     Dates: start: 20110112
  9. EFAVIRENZ [Concomitant]
     Active Substance: EFAVIRENZ
     Dosage: UNK UNK, UNKNOWN FREQ. (DAY 46)
     Route: 065
     Dates: start: 20110831
  10. EFAVIRENZ [Concomitant]
     Active Substance: EFAVIRENZ
     Dosage: UNK UNK, UNKNOWN FREQ. (DAY 81)
     Route: 065
     Dates: start: 20111005
  11. MYCOPHENOLATE [Concomitant]
     Active Substance: MYCOPHENOLIC ACID
     Indication: LIVER TRANSPLANT
     Dosage: UNK UNK, UNKNOWN FREQ.
     Route: 065
  12. EMTRICITABINE W/TENOFOVIR [Concomitant]
     Active Substance: EMTRICITABINE\TENOFOVIR DISOPROXIL
     Dosage: UNK UNK, UNKNOWN FREQ. (DAY 4)
     Route: 065
     Dates: start: 20110720
  13. EMTRICITABINE W/TENOFOVIR [Concomitant]
     Active Substance: EMTRICITABINE\TENOFOVIR DISOPROXIL
     Dosage: UNK UNK, UNKNOWN FREQ. (DAY 46)
     Route: 065
     Dates: start: 20110831
  14. EFAVIRENZ [Concomitant]
     Active Substance: EFAVIRENZ
     Dosage: UNK, UNKNOWN FREQ. (DAY 11)
     Route: 065
     Dates: start: 20110727
  15. EFAVIRENZ [Concomitant]
     Active Substance: EFAVIRENZ
     Dosage: UNK UNK, UNKNOWN FREQ. (DAY 1537)
     Route: 065
     Dates: start: 20150930
  16. EMTRICITABINE W/TENOFOVIR [Concomitant]
     Active Substance: EMTRICITABINE\TENOFOVIR DISOPROXIL
     Dosage: UNK UNK, UNKNOWN FREQ. (DAY 8)
     Route: 065
     Dates: start: 20110724
  17. EMTRICITABINE W/TENOFOVIR [Concomitant]
     Active Substance: EMTRICITABINE\TENOFOVIR DISOPROXIL
     Dosage: UNK UNK, UNKNOWN FREQ. (DAY 30)
     Route: 065
     Dates: start: 20110815
  18. EMTRICITABINE W/TENOFOVIR [Concomitant]
     Active Substance: EMTRICITABINE\TENOFOVIR DISOPROXIL
     Dosage: UNK UNK, UNKNOWN FREQ. (DAY 11)
     Route: 065
     Dates: start: 20110727
  19. EMTRICITABINE W/TENOFOVIR [Concomitant]
     Active Substance: EMTRICITABINE\TENOFOVIR DISOPROXIL
     Dosage: UNK UNK, UNKNOWN FREQ. (DAY 16)
     Route: 065
     Dates: start: 20110801
  20. EMTRICITABINE W/TENOFOVIR [Concomitant]
     Active Substance: EMTRICITABINE\TENOFOVIR DISOPROXIL
     Indication: FACTOR VIII DEFICIENCY
     Dosage: UNK UNK, UNKNOWN FREQ.
     Route: 065
     Dates: start: 2004
  21. EMTRICITABINE W/TENOFOVIR [Concomitant]
     Active Substance: EMTRICITABINE\TENOFOVIR DISOPROXIL
     Indication: HIV INFECTION
     Route: 065
     Dates: start: 20110112
  22. EMTRICITABINE W/TENOFOVIR [Concomitant]
     Active Substance: EMTRICITABINE\TENOFOVIR DISOPROXIL
     Dosage: UNK, UNKNOWN FREQ.
     Route: 065
     Dates: start: 20110718
  23. EFAVIRENZ [Concomitant]
     Active Substance: EFAVIRENZ
     Dosage: UNK UNK, UNKNOWN FREQ.
     Route: 065
     Dates: start: 20110324
  24. EFAVIRENZ [Concomitant]
     Active Substance: EFAVIRENZ
     Dosage: UNK UNK, UNKNOWN FREQ. (DAY 2)
     Route: 065
     Dates: start: 20110718
  25. PROGRAF [Suspect]
     Active Substance: TACROLIMUS\TACROLIMUS ANHYDROUS
     Indication: LIVER TRANSPLANT
     Dosage: UNK UNK, UNKNOWN FREQ.
     Route: 065
     Dates: start: 20110716
  26. EFAVIRENZ [Concomitant]
     Active Substance: EFAVIRENZ
     Dosage: UNK UNK, UNKNOWN FREQ. (DAY 4)
     Route: 065
     Dates: start: 20110720
  27. EFAVIRENZ [Concomitant]
     Active Substance: EFAVIRENZ
     Dosage: UNK UNK, UNKNOWN FREQ. (DAY 8)
     Route: 065
     Dates: start: 20110724
  28. EFAVIRENZ [Concomitant]
     Active Substance: EFAVIRENZ
     Dosage: UNK UNK, UNKNOWN FREQ. (DAY 30)
     Route: 065
     Dates: start: 20110815

REACTIONS (2)
  - Hepatic cirrhosis [Unknown]
  - HIV infection [Unknown]
